FAERS Safety Report 9702507 (Version 4)
Quarter: 2015Q3

REPORT INFORMATION
  Report Type: Spontaneous
  Country: CA (occurrence: None)
  Receive Date: 20131120
  Receipt Date: 20150701
  Transmission Date: 20151125
  Serious: Yes (Other)
  Sender: FDA-Public Use
  Company Number: 2013-003644

PATIENT
  Age: 32 Year
  Sex: Male
  Weight: 53.7 kg

DRUGS (21)
  1. ENABLEX [Suspect]
     Active Substance: DARIFENACIN\DARIFENACIN HYDROBROMIDE
     Indication: PROSTATITIS
     Dosage: ONCE A DAY
     Route: 048
     Dates: start: 20121101, end: 20130201
  2. TOVIAZ [Suspect]
     Active Substance: FESOTERODINE FUMARATE
     Indication: CYSTITIS ULCERATIVE
     Dosage: 4-8 MG QD OI
     Route: 048
     Dates: start: 20121101, end: 20130115
  3. RALTEGRAVIR (RALTEGRAVIR) [Suspect]
     Active Substance: RALTEGRAVIR
     Indication: HIV INFECTION
     Route: 048
     Dates: start: 20120315, end: 20130508
  4. FLOXIN (OFLOXACIN) [Concomitant]
  5. FLOXACILLIN (FLUCLOXACILLIN) [Concomitant]
  6. ENABLEX [Suspect]
     Active Substance: DARIFENACIN\DARIFENACIN HYDROBROMIDE
     Indication: BLADDER DISORDER
     Dosage: ONCE A DAY
     Route: 048
     Dates: start: 20121101, end: 20130201
  7. MARAVIROC (MARAVIROC) [Suspect]
     Active Substance: MARAVIROC
     Indication: HIV INFECTION
     Route: 048
     Dates: start: 20120315, end: 20130508
  8. ATIVAN [Concomitant]
     Active Substance: LORAZEPAM
  9. OXYCOCET (OXYCODONE HYDROCHLORIDE PARACETAMOL) [Concomitant]
  10. WELLBUTRIN [Concomitant]
     Active Substance: BUPROPION HYDROCHLORIDE
  11. DETROL LA [Suspect]
     Active Substance: TOLTERODINE TARTRATE
     Indication: BLADDER DISORDER
     Route: 048
     Dates: start: 20121101, end: 20130325
  12. LOPINAVIR W/RITONAVIR (LOPINAVIR, RITONAVIR) [Suspect]
     Active Substance: LOPINAVIR\RITONAVIR
     Indication: HIV INFECTION
     Route: 048
     Dates: start: 20120315
  13. CYMBALTA [Suspect]
     Active Substance: DULOXETINE HYDROCHLORIDE
     Indication: CYSTITIS ULCERATIVE
     Route: 048
     Dates: start: 20121101, end: 20130325
  14. DETROL LA [Suspect]
     Active Substance: TOLTERODINE TARTRATE
     Indication: PROSTATITIS
     Route: 048
     Dates: start: 20121101, end: 20130325
  15. DETROL LA [Suspect]
     Active Substance: TOLTERODINE TARTRATE
     Indication: ULCER
     Route: 048
     Dates: start: 20121101, end: 20130325
  16. ENABLEX [Suspect]
     Active Substance: DARIFENACIN\DARIFENACIN HYDROBROMIDE
     Indication: ULCER
     Dosage: ONCE A DAY
     Route: 048
     Dates: start: 20121101, end: 20130201
  17. TRUVADA [Suspect]
     Active Substance: EMTRICITABINE\TENOFOVIR DISOPROXIL FUMARATE
     Indication: HIV INFECTION
     Route: 048
     Dates: start: 20120315, end: 20130508
  18. INTELENCE [Concomitant]
     Active Substance: ETRAVIRINE
  19. NORFLOXACIN (NORFLOXACIN) [Concomitant]
  20. ELMIRON [Suspect]
     Active Substance: PENTOSAN POLYSULFATE SODIUM
     Indication: CYSTITIS
     Route: 048
     Dates: start: 20130424, end: 20130527
  21. GABAPENTIN (GABAPENTIN) [Concomitant]
     Active Substance: GABAPENTIN

REACTIONS (7)
  - Night sweats [None]
  - Cystitis ulcerative [None]
  - Depression [None]
  - Cystitis interstitial [None]
  - Cystitis [None]
  - Neutropenia [None]
  - Toxicity to various agents [None]

NARRATIVE: CASE EVENT DATE: 20121218
